FAERS Safety Report 6401159-7 (Version None)
Quarter: 2009Q4

REPORT INFORMATION
  Report Type: 
  Country: None (occurrence: None)
  Receive Date: 20091009
  Receipt Date: 20091009
  Transmission Date: 20100525
  Serious: Yes (Congenital Anomaly)
  Sender: FDA-Public Use
  Company Number: None

PATIENT
  Sex: Female
  Weight: 54.4316 kg

DRUGS (2)
  1. SERTRALINE HCL [Suspect]
     Indication: ANXIETY
     Dosage: 50MG DAILY PO
     Route: 048
     Dates: start: 20070824, end: 20091008
  2. SERTRALINE HCL [Suspect]
     Indication: DEPRESSION
     Dosage: 50MG DAILY PO
     Route: 048
     Dates: start: 20070824, end: 20091008

REACTIONS (2)
  - DRUG EXPOSURE DURING PREGNANCY [None]
  - TRISOMY 18 [None]
